FAERS Safety Report 20602159 (Version 7)
Quarter: 2022Q4

REPORT INFORMATION
  Report Type: Spontaneous
  Country: JP (occurrence: JP)
  Receive Date: 20220316
  Receipt Date: 20221025
  Transmission Date: 20230113
  Serious: Yes (Hospitalization, Other)
  Sender: FDA-Public Use
  Company Number: JP-MSD-M2022-09551

PATIENT
  Age: 60 Year
  Sex: Female

DRUGS (4)
  1. KEYTRUDA [Suspect]
     Active Substance: PEMBROLIZUMAB
     Indication: Uterine cancer
     Dosage: 200 MILLIGRAM, Q3W
     Route: 041
     Dates: start: 20220204, end: 202208
  2. LENVATINIB MESYLATE [Suspect]
     Active Substance: LENVATINIB MESYLATE
     Indication: Uterine cancer
     Dosage: 20 MILLIGRAM, QD
     Route: 048
     Dates: start: 20220204, end: 20220228
  3. LENVATINIB MESYLATE [Suspect]
     Active Substance: LENVATINIB MESYLATE
     Dosage: 10 MILLIGRAM, QD
     Route: 048
     Dates: start: 2022, end: 202208
  4. LENVATINIB MESYLATE [Suspect]
     Active Substance: LENVATINIB MESYLATE
     Dosage: 14 MILLIGRAM
     Route: 048
     Dates: start: 202210

REACTIONS (4)
  - Cardiac dysfunction [Recovered/Resolved]
  - Interstitial lung disease [Recovering/Resolving]
  - Hyponatraemia [Recovering/Resolving]
  - Blood antidiuretic hormone abnormal [Unknown]

NARRATIVE: CASE EVENT DATE: 20220201
